FAERS Safety Report 5623177-9 (Version None)
Quarter: 2008Q1

REPORT INFORMATION
  Report Type: 
  Country: None (occurrence: None)
  Receive Date: 20080207
  Receipt Date: 20080129
  Transmission Date: 20080703
  Serious: Yes (Hospitalization)
  Sender: FDA-Public Use
  Company Number: US-JNJFOC-20080101439

PATIENT
  Age: 59 Year
  Sex: Female

DRUGS (3)
  1. DACOGEN [Suspect]
     Indication: OVARIAN CANCER
     Dosage: 21.7 MG, 1 IN 5 WEEK, INTRAVENOUS
     Route: 042
     Dates: start: 20071029
  2. DACOGEN [Suspect]
     Indication: OVARIAN CANCER
     Dosage: 21.7 MG, 1 IN 5 WEEK, INTRAVENOUS
     Route: 042
     Dates: start: 20080122
  3. CARBOPLATIN [Suspect]
     Indication: OVARIAN CANCER
     Dosage: 426 MG, 1 IN 4 WEEK, INTRAVENOUS
     Route: 042
     Dates: start: 20071105

REACTIONS (6)
  - ANAEMIA [None]
  - ENTEROCOCCAL INFECTION [None]
  - ESCHERICHIA INFECTION [None]
  - PERIHEPATIC ABSCESS [None]
  - PLEURAL EFFUSION [None]
  - PYREXIA [None]
